FAERS Safety Report 9163921 (Version 1)
Quarter: 2013Q1

REPORT INFORMATION
  Report Type: Spontaneous
  Country: US (occurrence: US)
  Receive Date: 20130314
  Receipt Date: 20130314
  Transmission Date: 20140127
  Serious: Yes (Other)
  Sender: FDA-Public Use
  Company Number: CHPA2012US024921

PATIENT
  Sex: 0

DRUGS (3)
  1. EXCEDRIN EXTRA STRENGTH [Suspect]
     Indication: SYSTEMIC LUPUS ERYTHEMATOSUS
     Dosage: 1 DF, 3 TO 4 TIMES PER DAY
     Route: 048
     Dates: end: 2012
  2. EXCEDRIN EXTRA STRENGTH [Suspect]
     Indication: PAIN
  3. VICODIN [Concomitant]
     Indication: PAIN
     Dosage: UNK, UNK
     Route: 048

REACTIONS (10)
  - Intervertebral disc degeneration [Not Recovered/Not Resolved]
  - Intervertebral disc protrusion [Not Recovered/Not Resolved]
  - Fibromyalgia [Not Recovered/Not Resolved]
  - Scoliosis [Not Recovered/Not Resolved]
  - Osteoporosis [Not Recovered/Not Resolved]
  - Rheumatoid arthritis [Not Recovered/Not Resolved]
  - Therapeutic response unexpected [Unknown]
  - Off label use [Unknown]
  - Therapeutic response decreased [Unknown]
  - Underdose [Unknown]
